FAERS Safety Report 7716988-7 (Version None)
Quarter: 2011Q3

REPORT INFORMATION
  Report Type: 
  Country: None (occurrence: None)
  Receive Date: 20110829
  Receipt Date: 20110826
  Transmission Date: 20111222
  Serious: Yes (Death, Life-Threatening, Hospitalization)
  Sender: FDA-Public Use
  Company Number: PE-B.I. PHARMACEUTICALS,INC./RIDGEFIELD-2011-RA-00268RA

PATIENT
  Age: 85 Year
  Sex: Female
  Weight: 50 kg

DRUGS (4)
  1. PRADAXA [Suspect]
     Indication: PULMONARY EMBOLISM
  2. PRADAXA [Suspect]
     Indication: DEEP VEIN THROMBOSIS
     Dosage: 220 MG
     Route: 048
     Dates: start: 20110801, end: 20110801
  3. ENOXAPARIN [Concomitant]
     Indication: DEEP VEIN THROMBOSIS
     Dosage: 40 MG
     Route: 058
     Dates: start: 20110801, end: 20110801
  4. ENOXAPARIN [Concomitant]
     Indication: PULMONARY EMBOLISM

REACTIONS (1)
  - LOWER GASTROINTESTINAL HAEMORRHAGE [None]
